FAERS Safety Report 12929238 (Version 2)
Quarter: 2016Q4

REPORT INFORMATION
  Report Type: Spontaneous
  Country: US (occurrence: US)
  Receive Date: 20161110
  Receipt Date: 20161117
  Transmission Date: 20170207
  Serious: No
  Sender: FDA-Public Use
  Company Number: US-PFIZER INC-2016520207

PATIENT
  Sex: Female

DRUGS (1)
  1. XELJANZ XR [Suspect]
     Active Substance: TOFACITINIB CITRATE
     Dosage: 11 MG, 1X/DAY
     Dates: start: 20160601

REACTIONS (5)
  - Chills [Unknown]
  - Feeling cold [Unknown]
  - Condition aggravated [Unknown]
  - Gait disturbance [Unknown]
  - Arthritis [Unknown]
